FAERS Safety Report 6005767-7 (Version None)
Quarter: 2008Q4

REPORT INFORMATION
  Report Type: 
  Country: None (occurrence: None)
  Receive Date: 20081217
  Receipt Date: 20081205
  Transmission Date: 20090506
  Serious: Yes (Hospitalization)
  Sender: FDA-Public Use
  Company Number: BR-PFIZER INC-2008100186

PATIENT

DRUGS (2)
  1. EXEMESTANE [Suspect]
     Route: 048
     Dates: start: 20080805
  2. CP-751,871 [Suspect]
     Indication: BREAST CANCER
     Dosage: 20 MG/KG, EVERY 3 WEEKS
     Dates: start: 20080805

REACTIONS (4)
  - CEREBRAL HAEMORRHAGE [None]
  - FALL [None]
  - SENSORY LOSS [None]
  - SKULL FRACTURE [None]
